FAERS Safety Report 16226592 (Version 1)
Quarter: 2019Q2

REPORT INFORMATION
  Report Type: Spontaneous
  Country: GB (occurrence: GB)
  Receive Date: 20190423
  Receipt Date: 20190423
  Transmission Date: 20190711
  Serious: No
  Sender: FDA-Public Use
  Company Number: GB-LUPIN HEALTHCARE (UK) LIMITED-2019-01402

PATIENT
  Sex: Male

DRUGS (1)
  1. ABACAVIR/LAMIVUDIN [Suspect]
     Active Substance: ABACAVIR\LAMIVUDINE
     Indication: PRODUCT USED FOR UNKNOWN INDICATION
     Dosage: UNK
     Route: 065

REACTIONS (5)
  - Pyrexia [Unknown]
  - Fatigue [Unknown]
  - Abdominal pain [Unknown]
  - Cough [Unknown]
  - Nausea [Unknown]
